FAERS Safety Report 6473623-6 (Version None)
Quarter: 2009Q4

REPORT INFORMATION
  Report Type: 
  Country: None (occurrence: None)
  Receive Date: 20091204
  Receipt Date: 20091201
  Transmission Date: 20100525
  Serious: Yes (Life-Threatening)
  Sender: FDA-Public Use
  Company Number: JP-WYE-H12434109

PATIENT
  Age: 85 Year
  Sex: Male

DRUGS (1)
  1. ZOSYN [Suspect]
     Indication: PNEUMONIA ASPIRATION
     Route: 041
     Dates: start: 20090220, end: 20090224

REACTIONS (2)
  - HEPATITIS FULMINANT [None]
  - RENAL FAILURE ACUTE [None]
